FAERS Safety Report 16982632 (Version 1)
Quarter: 2019Q4

REPORT INFORMATION
  Report Type: Spontaneous
  Country: IT (occurrence: IT)
  Receive Date: 20191101
  Receipt Date: 20191101
  Transmission Date: 20200122
  Serious: Yes (Hospitalization)
  Sender: FDA-Public Use
  Company Number: IT-TEVA-2019-IT-1130442

PATIENT
  Age: 90 Year
  Sex: Male

DRUGS (8)
  1. BISOPROLOL FUMARATE. [Suspect]
     Active Substance: BISOPROLOL FUMARATE
     Dosage: 3.75  MG
     Route: 048
     Dates: start: 20180301, end: 20190721
  2. LASIX [Suspect]
     Active Substance: FUROSEMIDE
     Dosage: 50 MG
     Route: 048
     Dates: start: 20140401
  3. ALPRAZOLAM. [Concomitant]
     Active Substance: ALPRAZOLAM
     Route: 048
  4. XARELTO [Concomitant]
     Active Substance: RIVAROXABAN
     Dosage: 15 MG
     Route: 048
  5. RAMIPRIL. [Suspect]
     Active Substance: RAMIPRIL
     Dosage: 7.5 MG
     Dates: start: 20180301
  6. LUVION 50 MG COMPRESSE [Suspect]
     Active Substance: CANRENONE
     Dosage: 50 MG
     Route: 048
     Dates: start: 20181001, end: 20190721
  7. PANTOPRAZOLE [Concomitant]
     Active Substance: PANTOPRAZOLE
     Dosage: 20 MG
     Route: 048
  8. MINITRAN 10 MG/24 ORE CEROTTI TRANSDERMICI [Concomitant]
     Dosage: 1 DF

REACTIONS (2)
  - Hypotension [Recovering/Resolving]
  - Dehydration [Recovering/Resolving]

NARRATIVE: CASE EVENT DATE: 20190721
